FAERS Safety Report 15698182 (Version 1)
Quarter: 2018Q4

REPORT INFORMATION
  Report Type: Spontaneous
  Country: US (occurrence: US)
  Receive Date: 20181206
  Receipt Date: 20181206
  Transmission Date: 20190205
  Serious: Yes (Death)
  Sender: FDA-Public Use
  Company Number: None

PATIENT
  Sex: Male

DRUGS (7)
  1. ELIQUIS [Concomitant]
     Active Substance: APIXABAN
  2. PREDNISONE. [Concomitant]
     Active Substance: PREDNISONE
  3. CARTIA XT [Concomitant]
     Active Substance: DILTIAZEM HYDROCHLORIDE
  4. ATORVASTATIN [Concomitant]
     Active Substance: ATORVASTATIN
  5. BYSTOLIC [Concomitant]
     Active Substance: NEBIVOLOL HYDROCHLORIDE
  6. ZELBORAF [Suspect]
     Active Substance: VEMURAFENIB
     Indication: CARCINOID TUMOUR
     Route: 048
     Dates: start: 20181108
  7. DOXYCYCL [Concomitant]

REACTIONS (1)
  - Death [None]
